FAERS Safety Report 8450097-7 (Version None)
Quarter: 2012Q2

REPORT INFORMATION
  Report Type: 
  Country: None (occurrence: None)
  Receive Date: 20120620
  Receipt Date: 20120612
  Transmission Date: 20120825
  Serious: Yes (Other)
  Sender: FDA-Public Use
  Company Number: US-JNJFOC-20120314510

PATIENT
  Age: 29 Year
  Sex: Female
  Weight: 67.13 kg

DRUGS (2)
  1. REMICADE [Suspect]
     Indication: PSORIATIC ARTHROPATHY
     Route: 042
     Dates: start: 20070301
  2. ARAVA [Concomitant]
     Dates: start: 20091001

REACTIONS (1)
  - SKIN CANCER [None]
